FAERS Safety Report 23832285 (Version 1)
Quarter: 2024Q2

REPORT INFORMATION
  Report Type: Spontaneous
  Country: US (occurrence: None)
  Receive Date: 20240507
  Receipt Date: 20240507
  Transmission Date: 20240715
  Serious: Yes (Hospitalization)
  Sender: FDA-Public Use
  Company Number: None

PATIENT
  Age: 83 Year
  Sex: Male
  Weight: 94.3 kg

DRUGS (1)
  1. PRAVASTATIN SODIUM [Suspect]
     Active Substance: PRAVASTATIN SODIUM
     Indication: Cerebrovascular accident prophylaxis
     Dosage: 80 MG AT ABEDTIME PO
     Route: 048
     Dates: start: 20161122, end: 20230809

REACTIONS (2)
  - Liver function test increased [None]
  - Rhabdomyolysis [None]

NARRATIVE: CASE EVENT DATE: 20230809
